FAERS Safety Report 10872628 (Version 1)
Quarter: 2015Q1

REPORT INFORMATION
  Report Type: Spontaneous
  Country: AU (occurrence: AU)
  Receive Date: 20150227
  Receipt Date: 20150227
  Transmission Date: 20150721
  Serious: Yes (Other)
  Sender: FDA-Public Use
  Company Number: AU-009507513-1502AUS008396

PATIENT
  Sex: Male

DRUGS (2)
  1. ROCURONIUM BROMIDE. [Suspect]
     Active Substance: ROCURONIUM BROMIDE
     Dosage: GIVEN 10 TIMES THE RECOMMENDED DOSE
  2. SUGAMMADEX SODIUM [Suspect]
     Active Substance: SUGAMMADEX SODIUM
     Dosage: UNK

REACTIONS (2)
  - Cardiac arrest [Unknown]
  - Overdose [Unknown]
